FAERS Safety Report 6407862-7 (Version None)
Quarter: 2009Q4

REPORT INFORMATION
  Report Type: 
  Country: None (occurrence: None)
  Receive Date: 20091015
  Receipt Date: 20090901
  Transmission Date: 20100525
  Serious: Yes (Hospitalization)
  Sender: FDA-Public Use
  Company Number: DSA_33697_2009

PATIENT
  Sex: Female
  Weight: 86.1834 kg

DRUGS (10)
  1. CARDIZEM LA [Suspect]
     Indication: MYOCARDIAL INFARCTION
     Dosage: (180 MG QD ORAL)
     Route: 048
     Dates: start: 20060101, end: 20081015
  2. SYNTHROID [Concomitant]
  3. XANAX [Concomitant]
  4. LITHIUM CARBONATE [Concomitant]
  5. ASPIRIN [Concomitant]
  6. METOPROLOL [Concomitant]
  7. VITAMIN B-12 [Concomitant]
  8. LOVAZA [Concomitant]
  9. COQ10 [Concomitant]
  10. VITAMIN A [Concomitant]

REACTIONS (9)
  - DENTAL CARIES [None]
  - GINGIVAL PAIN [None]
  - MASS [None]
  - MYOCARDIAL INFARCTION [None]
  - NODULE [None]
  - PAIN [None]
  - SPEECH DISORDER [None]
  - TOOTH DISCOLOURATION [None]
  - TOOTH FRACTURE [None]
